FAERS Safety Report 16655257 (Version 1)
Quarter: 2019Q3

REPORT INFORMATION
  Report Type: Spontaneous
  Country: ES (occurrence: ES)
  Receive Date: 20190801
  Receipt Date: 20190801
  Transmission Date: 20191004
  Serious: Yes (Hospitalization)
  Sender: FDA-Public Use
  Company Number: ES-TEVA-2019-ES-1085952

PATIENT
  Age: 55 Year
  Sex: Female

DRUGS (3)
  1. PREDNISONA (886A) [Suspect]
     Active Substance: PREDNISONE
     Indication: SOLID ORGAN TRANSPLANT
     Dosage: 10 MILLIGRAM DAILY;
     Route: 048
     Dates: start: 20180727, end: 20190322
  2. TACROLIMUS (2694A) [Interacting]
     Active Substance: TACROLIMUS
     Indication: SOLID ORGAN TRANSPLANT
     Dosage: 20 MILLIGRAM DAILY;
     Route: 048
     Dates: start: 20180727, end: 20190322
  3. MICOFENOLATO DE MOFETILO (7330LM) [Interacting]
     Active Substance: MYCOPHENOLATE MOFETIL
     Indication: SOLID ORGAN TRANSPLANT
     Route: 048
     Dates: start: 20180727, end: 20190322

REACTIONS (2)
  - Genitourinary tract infection [Recovered/Resolved]
  - Drug interaction [Unknown]

NARRATIVE: CASE EVENT DATE: 20181101
